FAERS Safety Report 11306093 (Version 1)
Quarter: 2015Q3

REPORT INFORMATION
  Report Type: Spontaneous
  Country: IL (occurrence: IL)
  Receive Date: 20150723
  Receipt Date: 20150723
  Transmission Date: 20151125
  Serious: Yes (Death, Hospitalization, Other)
  Sender: FDA-Public Use
  Company Number: IL-KAMADA LIMITED-2015IL006490

PATIENT

DRUGS (1)
  1. GLASSIA [Suspect]
     Active Substance: .ALPHA.1-PROTEINASE INHIBITOR HUMAN
     Indication: GRAFT VERSUS HOST DISEASE
     Dosage: 4 G, UNK
     Dates: start: 20150702

REACTIONS (3)
  - Gastrointestinal haemorrhage [Fatal]
  - Off label use [Unknown]
  - Neutropenia [Unknown]
